FAERS Safety Report 14232874 (Version 1)
Quarter: 2017Q4

REPORT INFORMATION
  Report Type: Spontaneous
  Country: US (occurrence: US)
  Receive Date: 20171128
  Receipt Date: 20171128
  Transmission Date: 20180321
  Serious: No
  Sender: FDA-Public Use
  Company Number: US-JNJFOC-20171009328

PATIENT
  Age: 67 Year
  Sex: Female
  Weight: 68.04 kg

DRUGS (4)
  1. WOMENS ROGAINE [Suspect]
     Active Substance: MINOXIDIL
     Indication: ALOPECIA
     Route: 047
  2. WOMENS ROGAINE [Suspect]
     Active Substance: MINOXIDIL
     Indication: ACCIDENTAL EXPOSURE TO PRODUCT
     Route: 047
  3. WOMENS ROGAINE [Suspect]
     Active Substance: MINOXIDIL
     Indication: ACCIDENTAL EXPOSURE TO PRODUCT
     Route: 047
     Dates: start: 20171009, end: 20171009
  4. WOMENS ROGAINE [Suspect]
     Active Substance: MINOXIDIL
     Indication: ALOPECIA
     Route: 047
     Dates: start: 20171009, end: 20171009

REACTIONS (1)
  - Accidental exposure to product [Unknown]

NARRATIVE: CASE EVENT DATE: 20171009
